FAERS Safety Report 5793205-9 (Version None)
Quarter: 2008Q2

REPORT INFORMATION
  Report Type: 
  Country: None (occurrence: None)
  Receive Date: 20080626
  Receipt Date: 20080626
  Transmission Date: 20081010
  Serious: Yes (Other)
  Sender: FDA-Public Use
  Company Number: None

PATIENT
  Age: 28 Year
  Sex: Male
  Weight: 97.5234 kg

DRUGS (1)
  1. TOPAMAX [Suspect]
     Indication: BIPOLAR DISORDER
     Dosage: 100MG 2X DAY PO
     Route: 048
     Dates: start: 20071201, end: 20080101

REACTIONS (5)
  - ACTIVITIES OF DAILY LIVING IMPAIRED [None]
  - CORRECTIVE LENS USER [None]
  - EYE PAIN [None]
  - IMPAIRED WORK ABILITY [None]
  - VISUAL ACUITY REDUCED [None]
